FAERS Safety Report 8413578-8 (Version None)
Quarter: 2012Q2

REPORT INFORMATION
  Report Type: 
  Country: None (occurrence: None)
  Receive Date: 20120605
  Receipt Date: 20120525
  Transmission Date: 20120825
  Serious: Yes (Death, Hospitalization)
  Sender: FDA-Public Use
  Company Number: CO-ELI_LILLY_AND_COMPANY-CO201205009472

PATIENT
  Age: 87 Year
  Sex: Female

DRUGS (4)
  1. VERAPAMIL HCL [Concomitant]
  2. OMEPRAZOLE [Concomitant]
  3. ALBUTEROL [Concomitant]
  4. FORTEO [Suspect]
     Indication: OSTEOPOROSIS
     Dosage: 20 UG, QD
     Route: 058
     Dates: start: 20110901

REACTIONS (3)
  - DEATH [None]
  - LUNG INFECTION [None]
  - URINARY TRACT INFECTION [None]
